FAERS Safety Report 25240457 (Version 1)
Quarter: 2025Q2

REPORT INFORMATION
  Report Type: Spontaneous
  Country: US (occurrence: US)
  Receive Date: 20250425
  Receipt Date: 20250425
  Transmission Date: 20250717
  Serious: Yes (Other)
  Sender: ALVOGEN
  Company Number: None

PATIENT

DRUGS (1)
  1. LISDEXAMFETAMINE [Suspect]
     Active Substance: LISDEXAMFETAMINE
     Indication: Product used for unknown indication

REACTIONS (8)
  - Road traffic accident [Unknown]
  - Brain fog [Unknown]
  - Visual impairment [Unknown]
  - Hypophagia [Unknown]
  - Tooth fracture [Unknown]
  - Feeling jittery [Unknown]
  - Sleep disorder [Unknown]
  - Product substitution issue [Unknown]
